FAERS Safety Report 5821921-9 (Version None)
Quarter: 2008Q3

REPORT INFORMATION
  Report Type: 
  Country: None (occurrence: None)
  Receive Date: 20080724
  Receipt Date: 20080709
  Transmission Date: 20090109
  Serious: Yes (Hospitalization)
  Sender: FDA-Public Use
  Company Number: GB-GENENTECH-264718

PATIENT

DRUGS (1)
  1. RITUXIMAB [Suspect]
     Indication: VASCULITIS

REACTIONS (1)
  - NEUTROPENIA [None]
